FAERS Safety Report 14160085 (Version 5)
Quarter: 2018Q1

REPORT INFORMATION
  Report Type: Spontaneous
  Country: US (occurrence: US)
  Receive Date: 20171106
  Receipt Date: 20180116
  Transmission Date: 20180508
  Serious: Yes (Other)
  Sender: FDA-Public Use
  Company Number: US-JNJFOC-20171029049

PATIENT
  Age: 38 Year
  Sex: Female
  Weight: 81.65 kg

DRUGS (1)
  1. BENGAY ULTRA STRENGTH TUBE [Suspect]
     Active Substance: MENTHOL\METHYL SALICYLATE
     Indication: ACCIDENTAL EXPOSURE TO PRODUCT
     Route: 047
     Dates: start: 20170909

REACTIONS (8)
  - Accidental exposure to product [Unknown]
  - Product package associated injury [Unknown]
  - Fall [Recovered/Resolved]
  - Keratitis [Recovered/Resolved]
  - Nausea [Recovered/Resolved]
  - Chemical burns of eye [Recovered/Resolved]
  - Migraine [Recovered/Resolved]
  - Blindness transient [Recovered/Resolved]

NARRATIVE: CASE EVENT DATE: 20170909
